FAERS Safety Report 11137969 (Version 2)
Quarter: 2015Q3

REPORT INFORMATION
  Report Type: Spontaneous
  Country: US (occurrence: US)
  Receive Date: 20150526
  Receipt Date: 20150902
  Transmission Date: 20151125
  Serious: Yes (Hospitalization, Other)
  Sender: FDA-Public Use
  Company Number: US-LUNDBECK-DKLU1112816

PATIENT
  Age: 40 Year
  Sex: Female

DRUGS (5)
  1. SABRIL [Suspect]
     Active Substance: VIGABATRIN
     Indication: EPILEPSY
     Route: 065
     Dates: start: 20140513
  2. SABRIL [Suspect]
     Active Substance: VIGABATRIN
     Dosage: OVERDOSE: 500 MG, BID, 750 MG PM
     Route: 065
  3. SABRIL [Suspect]
     Active Substance: VIGABATRIN
     Route: 065
     Dates: start: 20150314
  4. SABRIL [Suspect]
     Active Substance: VIGABATRIN
     Dosage: OVERDOSE: 500 MG, BID, 750 MG PM
     Route: 065
  5. SABRIL [Suspect]
     Active Substance: VIGABATRIN
     Route: 065
     Dates: start: 20150314

REACTIONS (6)
  - Communication disorder [Recovered/Resolved]
  - Lethargy [Recovered/Resolved]
  - Prescribed overdose [Recovered/Resolved]
  - Sedation [Recovered/Resolved]
  - Generalised tonic-clonic seizure [Recovered/Resolved]
  - Seizure [Recovered/Resolved]

NARRATIVE: CASE EVENT DATE: 20150803
